FAERS Safety Report 26189581 (Version 1)
Quarter: 2025Q4

REPORT INFORMATION
  Report Type: Spontaneous
  Country: US (occurrence: US)
  Receive Date: 20251223
  Receipt Date: 20251223
  Transmission Date: 20260118
  Serious: Yes (Other)
  Sender: EPIC PHARM
  Company Number: US-EPICPHARMA-US-2025EPCSPO01266

PATIENT
  Sex: Male

DRUGS (6)
  1. RIFAMPIN [Suspect]
     Active Substance: RIFAMPIN
     Indication: Atypical mycobacterial lower respiratory tract infection
     Route: 065
  2. ETHAMBUTOL HYDROCHLORIDE [Suspect]
     Active Substance: ETHAMBUTOL HYDROCHLORIDE
     Indication: Atypical mycobacterial lower respiratory tract infection
     Route: 065
  3. AZITHROMYCIN [Suspect]
     Active Substance: AZITHROMYCIN
     Indication: Atypical mycobacterial lower respiratory tract infection
     Route: 065
  4. RIFABUTIN [Suspect]
     Active Substance: RIFABUTIN
     Indication: Atypical mycobacterial lower respiratory tract infection
     Route: 065
  5. AMIKACIN [Suspect]
     Active Substance: AMIKACIN
     Indication: Atypical mycobacterial lower respiratory tract infection
     Route: 065
  6. MOXIFLOXACIN [Concomitant]
     Active Substance: MOXIFLOXACIN
     Route: 065

REACTIONS (4)
  - Nephropathy toxic [Unknown]
  - Drug interaction [Unknown]
  - Drug intolerance [Unknown]
  - Product use in unapproved indication [Unknown]
